FAERS Safety Report 6676386-4 (Version None)
Quarter: 2010Q2

REPORT INFORMATION
  Report Type: 
  Country: None (occurrence: None)
  Receive Date: 20100412
  Receipt Date: 20100329
  Transmission Date: 20101027
  Serious: Yes (Other)
  Sender: FDA-Public Use
  Company Number: PHHY2010US19790

PATIENT

DRUGS (1)
  1. EXJADE [Suspect]
     Dosage: 6-8 UNITS A MONTH

REACTIONS (1)
  - WHITE BLOOD CELL COUNT INCREASED [None]
